FAERS Safety Report 6527845-6 (Version None)
Quarter: 2009Q4

REPORT INFORMATION
  Report Type: 
  Country: None (occurrence: None)
  Receive Date: 20091231
  Receipt Date: 20091215
  Transmission Date: 20100525
  Serious: Yes (Hospitalization)
  Sender: FDA-Public Use
  Company Number: DSA_42232_2009

PATIENT
  Age: 85 Year
  Sex: Male

DRUGS (4)
  1. MONO-TILDIEM (MONO-TILDIEM PROLONGED-RELEASE - DILTIAZEM HYDROCHLORIDE [Suspect]
     Indication: DRUG USE FOR UNKNOWN INDICATION
     Dosage: (300 MG QD ORAL)
     Route: 048
     Dates: start: 20081201, end: 20090624
  2. PLAVIX [Concomitant]
  3. INEXIUM /01479302/ [Concomitant]
  4. PRAVASTATINE /00880401/ [Concomitant]

REACTIONS (4)
  - ANAEMIA [None]
  - FALL [None]
  - MALAISE [None]
  - ORTHOSTATIC HYPOTENSION [None]
